FAERS Safety Report 12526622 (Version 3)
Quarter: 2016Q3

REPORT INFORMATION
  Report Type: Spontaneous
  Country: US (occurrence: US)
  Receive Date: 20160705
  Receipt Date: 20160811
  Transmission Date: 20161109
  Serious: Yes (Other)
  Sender: FDA-Public Use
  Company Number: US-009507513-1606USA014849

PATIENT
  Age: 31 Year
  Sex: Female
  Weight: 47.17 kg

DRUGS (1)
  1. NEXPLANON [Suspect]
     Active Substance: ETONOGESTREL
     Indication: CONTRACEPTION
     Dosage: ONE IMPLANT (STRENGTH 68MG) FOR 3 YEARS
     Route: 059
     Dates: start: 20151015

REACTIONS (1)
  - Brain neoplasm malignant [Not Recovered/Not Resolved]

NARRATIVE: CASE EVENT DATE: 201601
